FAERS Safety Report 5401121-7 (Version None)
Quarter: 2007Q3

REPORT INFORMATION
  Report Type: 
  Country: None (occurrence: None)
  Receive Date: 20070731
  Receipt Date: 20070718
  Transmission Date: 20080115
  Serious: Yes (Death)
  Sender: FDA-Public Use
  Company Number: US-NOVOPROD-240644

PATIENT

DRUGS (7)
  1. VAGIFEM [Suspect]
     Indication: HORMONE REPLACEMENT THERAPY
     Dosage: UNKNOWN
     Dates: start: 20020101, end: 20020101
  2. FEMHRT [Concomitant]
     Indication: HORMONE REPLACEMENT THERAPY
     Dosage: UNKNOWN
     Dates: start: 20020101, end: 20020101
  3. MEDROXYPROGESTERONE ACETATE [Concomitant]
     Indication: HORMONE REPLACEMENT THERAPY
     Dates: start: 19970101, end: 20020101
  4. PREMPRO [Concomitant]
     Dates: start: 19960101, end: 19970101
  5. PREMARIN [Concomitant]
     Dates: start: 19930101, end: 19960101
  6. CLIMARA [Concomitant]
     Dates: start: 19970101, end: 20010101
  7. PROVERA [Concomitant]
     Dates: start: 19930101, end: 19960101

REACTIONS (1)
  - ENDOMETRIAL CANCER [None]
